FAERS Safety Report 8838334 (Version 2)
Quarter: 2013Q1

REPORT INFORMATION
  Report Type: Spontaneous
  Country: FR (occurrence: FR)
  Receive Date: 20121012
  Receipt Date: 20130123
  Transmission Date: 20140127
  Serious: Yes (Other)
  Sender: FDA-Public Use
  Company Number: FR-GLAXOSMITHKLINE-B0828215A

PATIENT
  Age: 29 None
  Sex: Female
  Weight: 66 kg

DRUGS (3)
  1. LAMICTAL [Suspect]
     Indication: PARTIAL SEIZURES
     Route: 048
     Dates: start: 2005
  2. TEGRETOL [Suspect]
     Indication: PARTIAL SEIZURES
     Dosage: 400MG TWICE PER DAY
     Route: 048
     Dates: start: 201107, end: 201206
  3. KEPPRA [Suspect]
     Indication: PARTIAL SEIZURES
     Route: 065

REACTIONS (5)
  - Partial seizures [Unknown]
  - Live birth [Unknown]
  - Exposure during pregnancy [Unknown]
  - Condition aggravated [None]
  - Caesarean section [None]
